FAERS Safety Report 8790629 (Version 1)
Quarter: 2012Q4

REPORT INFORMATION
  Report Type: Spontaneous
  Country: US (occurrence: None)
  Receive Date: 20120912
  Receipt Date: 20120912
  Transmission Date: 20130627
  Serious: Yes (Other)
  Sender: FDA-Public Use
  Company Number: None

PATIENT
  Age: 88 Year
  Sex: Female
  Weight: 48.99 kg

DRUGS (1)
  1. DORZOLOMIDE [Suspect]
     Indication: GLAUCOMA
     Dates: start: 20120603

REACTIONS (9)
  - Blood pressure decreased [None]
  - Dyspnoea [None]
  - Headache [None]
  - Eye pain [None]
  - Ocular hyperaemia [None]
  - Eye irritation [None]
  - Blepharitis [None]
  - Diarrhoea [None]
  - Adrenal disorder [None]
